FAERS Safety Report 6037692-X (Version None)
Quarter: 2009Q1

REPORT INFORMATION
  Report Type: 
  Country: None (occurrence: None)
  Receive Date: 20090114
  Receipt Date: 20090109
  Transmission Date: 20090719
  Serious: Yes (Other)
  Sender: FDA-Public Use
  Company Number: US-AMGEN-US321090

PATIENT
  Sex: Male
  Weight: 70.8 kg

DRUGS (11)
  1. NPLATE [Suspect]
     Indication: IDIOPATHIC THROMBOCYTOPENIC PURPURA
     Route: 058
     Dates: start: 20081006, end: 20081210
  2. PREDNISONE TAB [Concomitant]
     Route: 065
     Dates: start: 20070908
  3. COREG [Concomitant]
     Route: 065
     Dates: start: 20070908
  4. METFORMIN HCL [Concomitant]
     Route: 065
     Dates: start: 20070908
  5. OXYCONTIN [Concomitant]
     Route: 065
     Dates: start: 20070726
  6. LOVASTATIN [Concomitant]
     Route: 065
     Dates: start: 20070908
  7. GLYBURIDE [Concomitant]
     Route: 065
     Dates: start: 20070726
  8. ALTACE [Concomitant]
     Route: 065
     Dates: start: 20070908
  9. AVODART [Concomitant]
     Route: 065
     Dates: start: 20070726
  10. CYMBALTA [Concomitant]
     Route: 065
     Dates: start: 20070908
  11. SENNA [Concomitant]
     Route: 065
     Dates: start: 20070726

REACTIONS (1)
  - APHASIA [None]
